FAERS Safety Report 8345277-5 (Version None)
Quarter: 2012Q2

REPORT INFORMATION
  Report Type: 
  Country: None (occurrence: None)
  Receive Date: 20120504
  Receipt Date: 20120406
  Transmission Date: 20120825
  Serious: Yes (Life-Threatening, Hospitalization)
  Sender: FDA-Public Use
  Company Number: US-2012-10026

PATIENT
  Age: 41 Year
  Sex: Male
  Weight: 77 kg

DRUGS (3)
  1. BUSULFEX [Suspect]
     Indication: MYELOID LEUKAEMIA
     Dosage: 3.2 MG/KG, QD, INTRAVENOUS, 232.9 MG MILLIGRAM(S), INTRAVENOUS
     Route: 042
     Dates: start: 20110819
  2. BUSULFEX [Suspect]
     Indication: MYELOID LEUKAEMIA
     Dosage: 3.2 MG/KG, QD, INTRAVENOUS, 232.9 MG MILLIGRAM(S), INTRAVENOUS
     Route: 042
     Dates: start: 20110816
  3. CYCLOPHOSPHAMIDE [Suspect]
     Indication: ACUTE MYELOID LEUKAEMIA
     Dosage: 60 MG/KG, QD, INTRAVENOUS
     Route: 042
     Dates: start: 20110821, end: 20110822

REACTIONS (24)
  - RENAL FAILURE [None]
  - OVERDOSE [None]
  - SEPTIC SHOCK [None]
  - RENAL IMPAIRMENT [None]
  - CONFUSIONAL STATE [None]
  - LEFT VENTRICULAR DYSFUNCTION [None]
  - CHOLELITHIASIS [None]
  - TREATMENT NONCOMPLIANCE [None]
  - CHOLANGITIS [None]
  - SOMNOLENCE [None]
  - THROMBOCYTOPENIA [None]
  - ENTEROCOCCUS TEST POSITIVE [None]
  - ENGRAFTMENT SYNDROME [None]
  - VENTRICULAR DYSFUNCTION [None]
  - BONE MARROW FAILURE [None]
  - MULTI-ORGAN DISORDER [None]
  - MUCOSAL INFLAMMATION [None]
  - NEUROLOGICAL DECOMPENSATION [None]
  - ACUTE RESPIRATORY DISTRESS SYNDROME [None]
  - STAPHYLOCOCCUS TEST POSITIVE [None]
  - MIOSIS [None]
  - JAUNDICE [None]
  - PSEUDOMONAS INFECTION [None]
  - HAEMOGLOBIN DECREASED [None]
